FAERS Safety Report 5913279-1 (Version None)
Quarter: 2008Q4

REPORT INFORMATION
  Report Type: 
  Country: None (occurrence: None)
  Receive Date: 20081008
  Receipt Date: 20081008
  Transmission Date: 20090506
  Serious: Yes (Hospitalization)
  Sender: FDA-Public Use
  Company Number: None

PATIENT
  Age: 18 Year
  Sex: Female
  Weight: 61.2356 kg

DRUGS (1)
  1. SINGULAIR [Suspect]
     Indication: ASTHMA
     Dosage: 1 DAILY PO
     Route: 048
     Dates: start: 19960602, end: 20071105

REACTIONS (6)
  - ABDOMINAL DISCOMFORT [None]
  - ABNORMAL FAECES [None]
  - COLITIS ULCERATIVE [None]
  - DEFAECATION URGENCY [None]
  - DIARRHOEA [None]
  - RECTAL HAEMORRHAGE [None]
